FAERS Safety Report 25495168 (Version 1)
Quarter: 2025Q2

REPORT INFORMATION
  Report Type: Spontaneous
  Country: VE (occurrence: VE)
  Receive Date: 20250630
  Receipt Date: 20250630
  Transmission Date: 20250716
  Serious: Yes (Other)
  Sender: NOVARTIS
  Company Number: VE-002147023-NVSC2024VE012414

PATIENT
  Sex: Female

DRUGS (1)
  1. GLIVEC [Suspect]
     Active Substance: IMATINIB MESYLATE
     Indication: Chronic myeloid leukaemia
     Route: 065

REACTIONS (6)
  - Ear disorder [Unknown]
  - Dizziness [Unknown]
  - Headache [Unknown]
  - Gastrointestinal polyp [Unknown]
  - Vomiting [Unknown]
  - Blood electrolytes decreased [Unknown]
